FAERS Safety Report 9768434 (Version 2)
Quarter: 2013Q4

REPORT INFORMATION
  Report Type: Report from Study
  Country: US (occurrence: US)
  Receive Date: 20131217
  Receipt Date: 20131217
  Transmission Date: 20140711
  Serious: Yes (Hospitalization, Other)
  Sender: FDA-Public Use
  Company Number: US-TEVA-442899USA

PATIENT
  Age: 33 Year
  Sex: Female

DRUGS (1)
  1. CLOZAPINE [Suspect]
     Route: 048

REACTIONS (4)
  - Cardiomyopathy [Recovering/Resolving]
  - Acute respiratory failure [Recovering/Resolving]
  - Cardiomegaly [Recovering/Resolving]
  - Cardiac disorder [Unknown]
